FAERS Safety Report 9708498 (Version 3)
Quarter: 2013Q4

REPORT INFORMATION
  Report Type: Spontaneous
  Country: JP (occurrence: JP)
  Receive Date: 20131125
  Receipt Date: 20131220
  Transmission Date: 20140711
  Serious: Yes (Death, Other)
  Sender: FDA-Public Use
  Company Number: JP-JNJFOC-20130311279

PATIENT
  Age: 79 Year
  Sex: Female
  Weight: 49 kg

DRUGS (5)
  1. ITRIZOLE [Suspect]
     Indication: PROPHYLAXIS
     Route: 048
     Dates: start: 20100707, end: 20100723
  2. VELCADE [Interacting]
     Indication: PLASMA CELL MYELOMA
     Route: 042
     Dates: start: 20100707, end: 20100717
  3. DECADRON [Concomitant]
     Indication: PLASMA CELL MYELOMA
     Dosage: ON DAYS 1, 2, 4, 5, 8, 9, 11 AND 12 OF EACH TREATMENT CYCLE
     Route: 048
     Dates: start: 20100707, end: 20100718
  4. TAKEPRON [Concomitant]
     Indication: PRODUCT USED FOR UNKNOWN INDICATION
     Route: 048
     Dates: start: 20100602
  5. ZYLORIC [Concomitant]
     Indication: PRODUCT USED FOR UNKNOWN INDICATION
     Route: 048

REACTIONS (4)
  - Platelet count decreased [Recovered/Resolved]
  - Plasma cell myeloma [Fatal]
  - Drug interaction [Unknown]
  - Neuropathy peripheral [Unknown]
